FAERS Safety Report 8832563 (Version 3)
Quarter: 2016Q4

REPORT INFORMATION
  Report Type: Spontaneous
  Country: PT (occurrence: PT)
  Receive Date: 20121010
  Receipt Date: 20161013
  Transmission Date: 20170207
  Serious: Yes (Other)
  Sender: FDA-Public Use
  Company Number: PT-RANBAXY-2012R1-60673

PATIENT
  Age: 53 Year
  Sex: Female

DRUGS (1)
  1. ZOLPIDEM [Suspect]
     Active Substance: ZOLPIDEM\ZOLPIDEM TARTRATE
     Indication: INSOMNIA
     Dosage: UNK
     Route: 065

REACTIONS (4)
  - Sleep-related eating disorder [Recovered/Resolved]
  - Decreased appetite [Unknown]
  - Nausea [Unknown]
  - Weight increased [Recovering/Resolving]
